FAERS Safety Report 12680461 (Version 2)
Quarter: 2016Q4

REPORT INFORMATION
  Report Type: Spontaneous
  Country: CH (occurrence: CH)
  Receive Date: 20160824
  Receipt Date: 20161005
  Transmission Date: 20170207
  Serious: Yes (Hospitalization)
  Sender: FDA-Public Use
  Company Number: CH-PFIZER INC-2016389753

PATIENT
  Age: 90 Year
  Sex: Female

DRUGS (7)
  1. MADOPAR [Suspect]
     Active Substance: BENSERAZIDE HYDROCHLORIDE\LEVODOPA
     Dosage: 100MG/25MG, 3X/DAY (200MG/50MG, 1/2-1/2-1/2-0)
  2. TEMESTA [Suspect]
     Active Substance: LORAZEPAM
     Dosage: 0.5 MG, 1X/DAY (1MG, 0-0-0-1/2)
     Route: 048
  3. LYRICA [Suspect]
     Active Substance: PREGABALIN
     Dosage: 62.5 MG, 1X/DAY
     Route: 048
  4. VITAMIN D3 STREULI [Concomitant]
     Dosage: GTT, EVERY TUESDAY
  5. CIPRALEX [Suspect]
     Active Substance: ESCITALOPRAM OXALATE
     Dosage: 10 MG, 1X/DAY (1-0-0-0)
  6. TOREM /01036501/ [Suspect]
     Active Substance: TORSEMIDE
     Dosage: 2.5 MG, 1X/DAY (5 MG, 1/2-0-0-0)
  7. ACIDUM FOLICUM STREULI [Concomitant]
     Dosage: 5 MG, 1X/DAY

REACTIONS (1)
  - Fall [Unknown]

NARRATIVE: CASE EVENT DATE: 20160726
